FAERS Safety Report 4550930-5 (Version None)
Quarter: 2004Q4

REPORT INFORMATION
  Report Type: 
  Country: None (occurrence: None)
  Receive Date: 20041217
  Receipt Date: 20040903
  Transmission Date: 20050328
  Serious: No
  Sender: FDA-Public Use
  Company Number: 2004-BP-07780BP

PATIENT
  Age: 66 Year
  Sex: Female
  Weight: 63.5 kg

DRUGS (13)
  1. SPIRIVA [Suspect]
     Indication: CHRONIC OBSTRUCTIVE AIRWAYS DISEASE
     Dosage: 18 MCG (18 MCG, 1 OD) IH
     Route: 055
     Dates: start: 20040817
  2. OXYGEN [Concomitant]
  3. LOPRESSOR [Concomitant]
  4. PREDNISONE [Concomitant]
  5. IMDUR [Concomitant]
  6. ENALAPRIL MALEATE [Concomitant]
  7. METOPROLOL [Concomitant]
  8. DELTASONE [Concomitant]
  9. CARDIZEM [Concomitant]
  10. LEXAPRO [Concomitant]
  11. OXYCONTIN [Concomitant]
  12. LORTAB [Concomitant]
  13. XOPENEX [Concomitant]

REACTIONS (3)
  - DIZZINESS [None]
  - NAUSEA [None]
  - VERTIGO [None]
